FAERS Safety Report 9437191 (Version 2)
Quarter: 2013Q3

REPORT INFORMATION
  Report Type: Report from Study
  Country: IL (occurrence: IL)
  Receive Date: 20130802
  Receipt Date: 20130808
  Transmission Date: 20140515
  Serious: Yes (Other)
  Sender: FDA-Public Use
  Company Number: PHHY2013IL080176

PATIENT
  Age: 60 Year
  Sex: Female

DRUGS (2)
  1. SANDOSTATIN LAR [Suspect]
     Indication: ACROMEGALY
     Dosage: 30 MG ONCE EVERY THREE WEEKS
     Dates: start: 20100826
  2. SANDOSTATIN LAR [Suspect]
     Indication: ADENOMA BENIGN
     Dosage: 30 MG ONCE EVERY THREE WEEKS
     Dates: start: 20130724

REACTIONS (2)
  - Adrenal adenoma [Unknown]
  - Hypertension [Recovered/Resolved]
